FAERS Safety Report 5887994-2 (Version None)
Quarter: 2008Q3

REPORT INFORMATION
  Report Type: 
  Country: None (occurrence: None)
  Receive Date: 20080916
  Receipt Date: 20080905
  Transmission Date: 20090109
  Serious: Yes (Other)
  Sender: FDA-Public Use
  Company Number: 2008SP018641

PATIENT
  Sex: Male

DRUGS (1)
  1. CLARITIN [Suspect]
     Indication: DRUG USE FOR UNKNOWN INDICATION
     Dosage: 10 MG; QD; PO
     Route: 048
     Dates: start: 20080903, end: 20080904

REACTIONS (2)
  - EYE DISORDER [None]
  - HYPOAESTHESIA FACIAL [None]
